FAERS Safety Report 5350741-7 (Version None)
Quarter: 2007Q2

REPORT INFORMATION
  Report Type: 
  Country: None (occurrence: None)
  Receive Date: 20070608
  Receipt Date: 20070531
  Transmission Date: 20071010
  Serious: Yes (Death, Hospitalization)
  Sender: FDA-Public Use
  Company Number: SE-ABBOTT-06P-150-0343444-00

PATIENT
  Sex: Female

DRUGS (1)
  1. HUMIRA [Suspect]
     Indication: RHEUMATOID ARTHRITIS
     Route: 058
     Dates: start: 20050215

REACTIONS (5)
  - ASCITES [None]
  - BILE DUCT CANCER [None]
  - CLOSTRIDIAL INFECTION [None]
  - DIARRHOEA [None]
  - NEOPLASM MALIGNANT [None]
